FAERS Safety Report 25588195 (Version 2)
Quarter: 2025Q3

REPORT INFORMATION
  Report Type: Spontaneous
  Country: EU (occurrence: EU)
  Receive Date: 20250722
  Receipt Date: 20250730
  Transmission Date: 20251021
  Serious: Yes (Hospitalization, Other)
  Sender: CELLTRION
  Company Number: None

PATIENT

DRUGS (35)
  1. RITUXIMAB [Suspect]
     Active Substance: RITUXIMAB
     Indication: Diffuse large B-cell lymphoma
     Route: 042
     Dates: start: 20250211, end: 20250211
  2. RITUXIMAB [Suspect]
     Active Substance: RITUXIMAB
     Route: 042
     Dates: start: 20241216, end: 20241216
  3. RITUXIMAB [Suspect]
     Active Substance: RITUXIMAB
     Route: 042
     Dates: start: 20241230, end: 20241230
  4. RITUXIMAB [Suspect]
     Active Substance: RITUXIMAB
     Route: 042
     Dates: start: 20250114, end: 20250114
  5. RITUXIMAB [Suspect]
     Active Substance: RITUXIMAB
     Route: 042
     Dates: start: 20250312, end: 20250312
  6. METHOTREXATE [Suspect]
     Active Substance: METHOTREXATE
     Indication: Diffuse large B-cell lymphoma
     Route: 042
     Dates: start: 20241202, end: 20241202
  7. METHOTREXATE [Suspect]
     Active Substance: METHOTREXATE
     Route: 042
     Dates: start: 20241216, end: 20241216
  8. METHOTREXATE [Suspect]
     Active Substance: METHOTREXATE
     Route: 042
     Dates: start: 20241230, end: 20241230
  9. METHOTREXATE [Suspect]
     Active Substance: METHOTREXATE
     Route: 042
     Dates: start: 20250115, end: 20250115
  10. METHOTREXATE [Suspect]
     Active Substance: METHOTREXATE
     Route: 042
     Dates: start: 20250211, end: 20250211
  11. METHOTREXATE [Suspect]
     Active Substance: METHOTREXATE
     Route: 042
     Dates: start: 20250312, end: 20250312
  12. VINCRISTINE SULFATE [Suspect]
     Active Substance: VINCRISTINE SULFATE
     Indication: Diffuse large B-cell lymphoma
     Route: 042
     Dates: start: 20241216, end: 20241216
  13. VINCRISTINE SULFATE [Suspect]
     Active Substance: VINCRISTINE SULFATE
     Route: 042
     Dates: start: 20241230, end: 20241230
  14. VINCRISTINE SULFATE [Suspect]
     Active Substance: VINCRISTINE SULFATE
     Route: 042
     Dates: start: 20250114, end: 20250114
  15. VINCRISTINE SULFATE [Suspect]
     Active Substance: VINCRISTINE SULFATE
     Route: 042
     Dates: start: 20250211, end: 20250211
  16. VINCRISTINE SULFATE [Suspect]
     Active Substance: VINCRISTINE SULFATE
     Route: 042
     Dates: start: 20250312, end: 20250312
  17. PROCARBAZINE [Suspect]
     Active Substance: PROCARBAZINE
     Indication: Diffuse large B-cell lymphoma
     Route: 042
     Dates: start: 20241216, end: 20241216
  18. PROCARBAZINE [Suspect]
     Active Substance: PROCARBAZINE
     Route: 042
     Dates: start: 20241230, end: 20241230
  19. PROCARBAZINE [Suspect]
     Active Substance: PROCARBAZINE
     Route: 042
     Dates: start: 20250114, end: 20250114
  20. PROCARBAZINE [Suspect]
     Active Substance: PROCARBAZINE
     Route: 042
     Dates: start: 20250211, end: 20250211
  21. PROCARBAZINE [Suspect]
     Active Substance: PROCARBAZINE
     Route: 042
     Dates: start: 20250312, end: 20250312
  22. AMLODIPINE [Suspect]
     Active Substance: AMLODIPINE BESYLATE
     Indication: Hypertension
     Route: 048
     Dates: start: 20250214, end: 20250310
  23. NICARDIPINE [Concomitant]
     Active Substance: NICARDIPINE
  24. ENOXAPARIN SODIUM [Concomitant]
     Active Substance: ENOXAPARIN SODIUM
  25. KARDEGIC [Concomitant]
     Active Substance: ASPIRIN DL-LYSINE
  26. RAMIPRIL [Concomitant]
     Active Substance: RAMIPRIL
  27. PREGABALIN [Concomitant]
     Active Substance: PREGABALIN
  28. PANTOPRAZOLE [Concomitant]
     Active Substance: PANTOPRAZOLE
  29. LEVETIRACETAM [Concomitant]
     Active Substance: LEVETIRACETAM
  30. HALDOL [Concomitant]
     Active Substance: HALOPERIDOL
  31. ESCITALOPRAM [Concomitant]
     Active Substance: ESCITALOPRAM OXALATE
  32. PREDNISOLONE [Concomitant]
     Active Substance: PREDNISOLONE
  33. VALACYCLOVIR HYDROCHLORIDE [Concomitant]
     Active Substance: VALACYCLOVIR HYDROCHLORIDE
  34. OXYCODONE HYDROCHLORIDE [Concomitant]
     Active Substance: OXYCODONE HYDROCHLORIDE
  35. CETIRIZINE [Concomitant]
     Active Substance: CETIRIZINE HYDROCHLORIDE

REACTIONS (1)
  - Toxic epidermal necrolysis [Recovering/Resolving]

NARRATIVE: CASE EVENT DATE: 20250307
